FAERS Safety Report 4894858-X (Version None)
Quarter: 2006Q1

REPORT INFORMATION
  Report Type: 
  Country: None (occurrence: None)
  Receive Date: 20060126
  Receipt Date: 20060126
  Transmission Date: 20060701
  Serious: Yes (Other)
  Sender: FDA-Public Use
  Company Number: None

PATIENT
  Sex: Female
  Weight: 59.4212 kg

DRUGS (1)
  1. APRI   DESOGESTREL + ETHINYL ESTRADIOL [Suspect]
     Indication: CONTRACEPTION
     Dosage: 1 TABLET PO DAILY
     Route: 048
     Dates: start: 20020101

REACTIONS (2)
  - PHARMACEUTICAL PRODUCT COMPLAINT [None]
  - VAGINAL HAEMORRHAGE [None]
